FAERS Safety Report 4474111-9 (Version None)
Quarter: 2004Q4

REPORT INFORMATION
  Report Type: 
  Country: None (occurrence: None)
  Receive Date: 20041008
  Receipt Date: 20040927
  Transmission Date: 20050328
  Serious: Yes (Hospitalization)
  Sender: FDA-Public Use
  Company Number: K200401477

PATIENT
  Age: 71 Year
  Sex: Male

DRUGS (14)
  1. ALTACE [Suspect]
     Dosage: ORAL
     Route: 048
     Dates: end: 20040301
  2. FUROSEMIDE [Suspect]
     Dosage: ORAL
     Route: 048
  3. MODOPAR (BENSERAZIDE HYDROCHLORIDE, LEVODOPA) [Suspect]
     Dosage: ORAL
     Route: 048
  4. ADANCOR (NICORANDIL) TABLET [Suspect]
     Dosage: ORAL
     Route: 048
  5. OMEPRAZOLE [Suspect]
     Dosage: ORAL
     Route: 048
     Dates: end: 20040301
  6. KARDEGIC (ACETYLSALICYLATE LYSINE) POWDER (EXCEPT [DPO]) [Suspect]
     Dosage: ORAL
     Route: 048
  7. BRONCHOD (CARBOCISTEINE) [Concomitant]
  8. RANITIDINE HYDROCHLORIDE [Concomitant]
  9. NMITRODERM (GLYCERYL TRINITRATE) [Concomitant]
  10. GLUCOPHAGE [Concomitant]
  11. APROVEL (IRBESARTAN) [Concomitant]
  12. HUMALOG MIX (INSULIN LISPRO PROTAMINE SUSPENSION, INSULIN LISPRO) [Concomitant]
  13. VASTAREL (TRIMETAZIDINE HYDROCHLORIDE) [Concomitant]
  14. ACETAMINOPHEN [Concomitant]

REACTIONS (2)
  - DERMATITIS BULLOUS [None]
  - PRURITUS [None]
